FAERS Safety Report 17232794 (Version 1)
Quarter: 2020Q1

REPORT INFORMATION
  Report Type: Spontaneous
  Country: US (occurrence: US)
  Receive Date: 20200103
  Receipt Date: 20200103
  Transmission Date: 20200409
  Serious: Yes (Hospitalization, Disabling)
  Sender: FDA-Public Use
  Company Number: US-JNJFOC-20191247921

PATIENT
  Age: 50 Year
  Sex: Male

DRUGS (4)
  1. INVOKANA [Suspect]
     Active Substance: CANAGLIFLOZIN
     Route: 048
     Dates: end: 20160109
  2. INVOKANA [Suspect]
     Active Substance: CANAGLIFLOZIN
     Route: 048
  3. INVOKANA [Suspect]
     Active Substance: CANAGLIFLOZIN
     Indication: TYPE 2 DIABETES MELLITUS
     Route: 048
  4. INVOKAMET [Suspect]
     Active Substance: CANAGLIFLOZIN\METFORMIN HYDROCHLORIDE
     Indication: TYPE 2 DIABETES MELLITUS
     Dosage: 150/1000MG
     Route: 048
     Dates: start: 20150518

REACTIONS (5)
  - Foot amputation [Unknown]
  - Pollakiuria [Unknown]
  - Diabetic foot infection [Unknown]
  - Osteomyelitis [Unknown]
  - Leg amputation [Recovering/Resolving]

NARRATIVE: CASE EVENT DATE: 20140618
